FAERS Safety Report 10101185 (Version 1)
Quarter: 2014Q2

REPORT INFORMATION
  Report Type: Spontaneous
  Country: IN (occurrence: None)
  Receive Date: 20140422
  Receipt Date: 20140422
  Transmission Date: 20141212
  Serious: Yes (Death)
  Sender: FDA-Public Use
  Company Number: FK201401370

PATIENT
  Age: 63 Year
  Sex: Female

DRUGS (5)
  1. PACLITAXEL (MANUFACTURER UNKNOWN) (PACLITAXEL) (PACLITAXEL) [Suspect]
     Indication: OESOPHAGEAL CARCINOMA
  2. DOCETAXEL (MANUFACTURER UNKNOWN) (DOCETAXEL) (DOCETAXEL) [Suspect]
     Dates: start: 201209, end: 201212
  3. CISPLATIN (CISPLATIN) [Concomitant]
  4. 5-FLUOROURACIL(FLUOROURACIL) [Concomitant]
  5. CARBOPLATIN (CARBOPLATIN) [Concomitant]

REACTIONS (2)
  - Pneumonitis [None]
  - Chest pain [None]
